FAERS Safety Report 25784704 (Version 3)
Quarter: 2025Q3

REPORT INFORMATION
  Report Type: Spontaneous
  Country: US (occurrence: US)
  Receive Date: 20250910
  Receipt Date: 20250919
  Transmission Date: 20251021
  Serious: No
  Sender: LUPIN
  Company Number: US-LUPIN PHARMACEUTICALS INC.-2025-08034

PATIENT
  Age: 39 Year

DRUGS (6)
  1. TOLVAPTAN [Suspect]
     Active Substance: TOLVAPTAN
     Indication: Product used for unknown indication
  2. TOLVAPTAN [Suspect]
     Active Substance: TOLVAPTAN
  3. TOLVAPTAN [Suspect]
     Active Substance: TOLVAPTAN
  4. TOLVAPTAN [Suspect]
     Active Substance: TOLVAPTAN
     Indication: Product used for unknown indication
  5. TOLVAPTAN [Suspect]
     Active Substance: TOLVAPTAN
  6. TOLVAPTAN [Suspect]
     Active Substance: TOLVAPTAN

REACTIONS (1)
  - Drug ineffective [Unknown]
